FAERS Safety Report 6735744-X (Version None)
Quarter: 2010Q2

REPORT INFORMATION
  Report Type: 
  Country: None (occurrence: None)
  Receive Date: 20100521
  Receipt Date: 20100513
  Transmission Date: 20101027
  Serious: Yes (Death, Hospitalization)
  Sender: FDA-Public Use
  Company Number: A0788092A

PATIENT
  Age: 63 Year
  Sex: Male
  Weight: 104.5 kg

DRUGS (1)
  1. AVANDIA [Suspect]
     Dosage: 8MG PER DAY
     Route: 048
     Dates: start: 20051001, end: 20060528

REACTIONS (4)
  - ATRIAL FIBRILLATION [None]
  - DEATH [None]
  - MYOCARDIAL INFARCTION [None]
  - RESPIRATORY FAILURE [None]
